FAERS Safety Report 18027091 (Version 4)
Quarter: 2020Q3

REPORT INFORMATION
  Report Type: Report from Study
  Country: US (occurrence: US)
  Receive Date: 20200715
  Receipt Date: 20200923
  Transmission Date: 20201103
  Serious: Yes (Other)
  Sender: FDA-Public Use
  Company Number: US-BAYER-2020-137904

PATIENT
  Age: 35 Year
  Sex: Female

DRUGS (1)
  1. STIVARGA [Suspect]
     Active Substance: REGORAFENIB
     Indication: COLORECTAL CANCER
     Dosage: 120 MG DAILY AFTER A LOW FAT MEAL FOR 21 DAYS ON AND 7 DAYS OFF
     Route: 048
     Dates: start: 20200521, end: 20200804

REACTIONS (6)
  - Lung neoplasm [Not Recovered/Not Resolved]
  - Off label use [None]
  - Palmar-plantar erythrodysaesthesia syndrome [Recovering/Resolving]
  - Decreased activity [Not Recovered/Not Resolved]
  - Colorectal cancer [Not Recovered/Not Resolved]
  - Neuropathy peripheral [Not Recovered/Not Resolved]

NARRATIVE: CASE EVENT DATE: 20200521
